FAERS Safety Report 18163954 (Version 4)
Quarter: 2021Q4

REPORT INFORMATION
  Report Type: Spontaneous
  Country: US (occurrence: US)
  Receive Date: 20200818
  Receipt Date: 20211126
  Transmission Date: 20220303
  Serious: Yes (Other)
  Sender: FDA-Public Use
  Company Number: US-GILEAD-2020-0489888

PATIENT
  Age: 60 Year
  Sex: Male

DRUGS (2)
  1. TRUVADA [Suspect]
     Active Substance: EMTRICITABINE\TENOFOVIR DISOPROXIL FUMARATE
     Indication: HIV infection
     Dosage: UNK
     Route: 048
     Dates: start: 20131115, end: 20170327
  2. DESCOVY [Concomitant]
     Active Substance: EMTRICITABINE\TENOFOVIR ALAFENAMIDE FUMARATE
     Indication: HIV infection

REACTIONS (11)
  - Multiple fractures [Unknown]
  - Fractured coccyx [Not Recovered/Not Resolved]
  - Osteoporosis [Unknown]
  - Osteonecrosis [Unknown]
  - Chronic kidney disease [Recovered/Resolved]
  - Nephrolithiasis [Recovered/Resolved]
  - Renal failure [Unknown]
  - Bone density decreased [Unknown]
  - Bone loss [Unknown]
  - Tooth loss [Unknown]
  - Osteopenia [Unknown]

NARRATIVE: CASE EVENT DATE: 20170201
